FAERS Safety Report 24969318 (Version 1)
Quarter: 2025Q1

REPORT INFORMATION
  Report Type: Spontaneous
  Country: IN (occurrence: IN)
  Receive Date: 20250214
  Receipt Date: 20250214
  Transmission Date: 20250409
  Serious: Yes (Other)
  Sender: MACLEODS
  Company Number: IN-MLMSERVICE-20250127-PI377838-00039-1

PATIENT

DRUGS (4)
  1. ACYCLOVIR [Suspect]
     Active Substance: ACYCLOVIR
     Indication: Encephalitis
     Dosage: ACYCLOVIR (10 MG/KG/DOSE 8 HOURLY DILUTED IN 30 ML NORMAL SALINE AT A CONCENTRATION OF 6 MG/ML)
     Route: 042
  2. SODIUM CHLORIDE [Concomitant]
     Active Substance: SODIUM CHLORIDE
     Indication: Product used for unknown indication
     Route: 042
  3. CEFTRIAXONE [Concomitant]
     Active Substance: CEFTRIAXONE
     Route: 042
  4. VANCOMYCIN [Concomitant]
     Active Substance: VANCOMYCIN
     Route: 042

REACTIONS (1)
  - Dermatitis bullous [Recovered/Resolved]
